FAERS Safety Report 8462516-0 (Version None)
Quarter: 2012Q2

REPORT INFORMATION
  Report Type: 
  Country: None (occurrence: None)
  Receive Date: 20120625
  Receipt Date: 20120619
  Transmission Date: 20120825
  Serious: Yes (Death, Hospitalization, Other)
  Sender: FDA-Public Use
  Company Number: IT-JNJFOC-20120611422

PATIENT

DRUGS (1)
  1. CLADRIBINE [Suspect]
     Indication: HAIRY CELL LEUKAEMIA
     Dosage: 0.5 MG/KG-ARM A FOR 5 DAYS  0.7 MG/KG-ARM B FOR 7 DAYS
     Route: 058

REACTIONS (9)
  - CARDIAC DISORDER [None]
  - INFECTION [None]
  - PLATELET TRANSFUSION [None]
  - TOXICITY TO VARIOUS AGENTS [None]
  - NEOPLASM PROGRESSION [None]
  - PACKED RED BLOOD CELL TRANSFUSION [None]
  - COLONY STIMULATING FACTOR THERAPY [None]
  - PYREXIA [None]
  - HOSPITALISATION [None]
